FAERS Safety Report 7462089 (Version 2)
Quarter: 2014Q2

REPORT INFORMATION
  Report Type: Spontaneous
  Country: CA (occurrence: CA)
  Receive Date: 20100709
  Receipt Date: 20140430
  Transmission Date: 20141212
  Serious: Yes (Other)
  Sender: FDA-Public Use
  Company Number: CA-MERCK-1007USA00481

PATIENT
  Age: 46 Year
  Sex: Male
  Weight: 94 kg

DRUGS (18)
  1. ISENTRESS [Suspect]
     Dosage: 1 DF, QD
     Route: 048
  2. LAMIVUDINE [Suspect]
     Dosage: 150.0 MG, BID
     Route: 048
  3. LAMIVUDINE [Suspect]
     Dosage: UNK
     Route: 048
  4. LAMIVUDINE [Suspect]
     Dosage: 300 MG, QD
     Route: 048
  5. LAMIVUDINE [Suspect]
     Dosage: 150 MG, QD
     Route: 048
  6. FUZEON [Suspect]
     Dosage: 90.0 MG, BID
     Route: 058
  7. INTELENCE [Suspect]
     Dosage: 100.0 MG, BID
     Route: 048
  8. VIREAD [Suspect]
     Dosage: 300.0 MG, QD
     Route: 048
  9. ACYCLOVIR [Concomitant]
     Dosage: 400 MG, BID
     Route: 048
  10. FENOFIBRATE [Concomitant]
     Dosage: 200 MG, QD
     Route: 065
  11. FOLIC ACID [Concomitant]
     Dosage: 10 MG, QD
     Route: 048
  12. HYDROXYZINE [Concomitant]
     Dosage: UNK, PRN
     Route: 048
  13. VITAMINS (UNSPECIFIED) [Concomitant]
     Route: 048
  14. TEMAZEPAM [Concomitant]
     Dosage: UNK, PRN
     Route: 048
  15. SULFAMETHOXAZOLE (+) TRIMETHOPRIM [Concomitant]
     Dosage: UNK UNK, QD
     Route: 048
  16. VITAMIN D (UNSPECIFIED) [Concomitant]
     Route: 048
  17. VITAMIN E [Concomitant]
     Route: 048
  18. ZOPICLONE [Concomitant]
     Dosage: UNK, PRN
     Route: 048

REACTIONS (6)
  - Hepatic steatosis [Not Recovered/Not Resolved]
  - Alanine aminotransferase increased [Not Recovered/Not Resolved]
  - Aspartate aminotransferase increased [Not Recovered/Not Resolved]
  - Liver disorder [Not Recovered/Not Resolved]
  - Lymphadenopathy [Not Recovered/Not Resolved]
  - Drug-induced liver injury [Not Recovered/Not Resolved]
